FAERS Safety Report 20069617 (Version 1)
Quarter: 2021Q4

REPORT INFORMATION
  Report Type: Spontaneous
  Country: US (occurrence: None)
  Receive Date: 20211112
  Receipt Date: 20211112
  Transmission Date: 20220303
  Serious: No
  Sender: FDA-Public Use
  Company Number: None

PATIENT
  Age: 50 Year
  Sex: Female

DRUGS (1)
  1. FOSAPREPITANT (FOSAPREPITANT DIMEGLUMINE) [Suspect]
     Active Substance: FOSAPREPITANT DIMEGLUMINE
     Indication: Breast cancer
     Dates: start: 20210715, end: 20210715

REACTIONS (8)
  - Infusion related reaction [None]
  - Abdominal pain [None]
  - Heart rate increased [None]
  - Dyspnoea [None]
  - Chest discomfort [None]
  - Swelling [None]
  - Erythema [None]
  - Flushing [None]

NARRATIVE: CASE EVENT DATE: 20210715
